FAERS Safety Report 8910719 (Version 1)
Quarter: 2012Q4

REPORT INFORMATION
  Report Type: Spontaneous
  Country: IN (occurrence: None)
  Receive Date: 20121107
  Receipt Date: 20121107
  Transmission Date: 20130627
  Serious: Yes (Hospitalization, Other)
  Sender: FDA-Public Use
  Company Number: FK201203285

PATIENT
  Age: 6 Year
  Sex: Male

DRUGS (8)
  1. METHOTREXATE [Suspect]
     Indication: PRECURSOR T-LYMPHOBLASTIC LYMPHOMA/LEUKAEMIA
  2. CYTARABINE [Suspect]
     Indication: PRECURSOR T-LYMPHOBLASTIC LYMPHOMA/LEUKAEMIA
  3. CYCLOPHOSPHAMIDE [Suspect]
  4. MERCAPTOPURINE [Suspect]
  5. PREDNISOLONE [Suspect]
  6. ASPARAGINASE [Suspect]
  7. DAUNORUBICIN [Suspect]
  8. VINCRISTINE [Suspect]

REACTIONS (2)
  - Neutropenic colitis [None]
  - Thrombocytopenia [None]
